FAERS Safety Report 5613754-3 (Version None)
Quarter: 2008Q1

REPORT INFORMATION
  Report Type: 
  Country: None (occurrence: None)
  Receive Date: 20080205
  Receipt Date: 20080130
  Transmission Date: 20080703
  Serious: Yes (Other)
  Sender: FDA-Public Use
  Company Number: BR-AVENTIS-200713713EU

PATIENT
  Age: 25 Year
  Sex: Female
  Weight: 85 kg

DRUGS (2)
  1. CLEXANE [Suspect]
     Route: 058
     Dates: start: 20070501, end: 20071101
  2. ANTIEMETICS AND ANTINAUSEANTS [Suspect]
     Indication: NAUSEA

REACTIONS (3)
  - ABORTION SPONTANEOUS [None]
  - AMNIORRHOEA [None]
  - DRUG EXPOSURE DURING PREGNANCY [None]
